FAERS Safety Report 10548046 (Version 1)
Quarter: 2014Q4

REPORT INFORMATION
  Report Type: Report from Study
  Country: HU (occurrence: HU)
  Receive Date: 20141028
  Receipt Date: 20141028
  Transmission Date: 20150529
  Serious: Yes (Hospitalization)
  Sender: FDA-Public Use
  Company Number: PHHO2014HU014137

PATIENT
  Age: 58 Year
  Sex: Male
  Weight: 57 kg

DRUGS (7)
  1. BLINDED BKM120 [Suspect]
     Active Substance: BUPARLISIB HYDROCHLORIDE
     Indication: SQUAMOUS CELL CARCINOMA OF HEAD AND NECK
     Dosage: 100 MG, UNK
     Route: 065
     Dates: start: 20140528, end: 20141015
  2. BLINDED NO TREATMENT RECEIVED [Suspect]
     Active Substance: UNSPECIFIED INGREDIENT
     Indication: SQUAMOUS CELL CARCINOMA OF HEAD AND NECK
     Dosage: 100 MG, UNK
     Route: 065
     Dates: start: 20140528, end: 20141015
  3. COMPARATOR PACLITAXEL [Suspect]
     Active Substance: PACLITAXEL
     Indication: SQUAMOUS CELL CARCINOMA OF HEAD AND NECK
     Dosage: 65 MG, UNK
     Route: 065
     Dates: start: 20140528, end: 20140924
  4. FENTANYL. [Concomitant]
     Active Substance: FENTANYL
     Dosage: DOSE INCREASED
     Dates: start: 20141016
  5. FENTANYL. [Concomitant]
     Active Substance: FENTANYL
     Indication: CANCER PAIN
     Dosage: 125 MG, UNK
     Route: 062
     Dates: start: 20110515, end: 20141015
  6. DICLOFENAC [Suspect]
     Active Substance: DICLOFENAC
     Indication: PRODUCT USED FOR UNKNOWN INDICATION
     Route: 065
  7. PLACEBO [Suspect]
     Active Substance: UNSPECIFIED INGREDIENT
     Indication: SQUAMOUS CELL CARCINOMA OF HEAD AND NECK
     Dosage: 100 MG, UNK
     Route: 065
     Dates: start: 20140528, end: 20141015

REACTIONS (1)
  - Abdominal pain [Recovered/Resolved]

NARRATIVE: CASE EVENT DATE: 20141016
